FAERS Safety Report 8240743-5 (Version None)
Quarter: 2012Q1

REPORT INFORMATION
  Report Type: 
  Country: None (occurrence: None)
  Receive Date: 20120309
  Receipt Date: 20110420
  Transmission Date: 20120608
  Serious: Yes (Other)
  Sender: FDA-Public Use
  Company Number: PHHY2010US19371

PATIENT
  Age: 43 Year
  Sex: Female
  Weight: 93 kg

DRUGS (7)
  1. MOTRIN [Concomitant]
  2. PROVIGIL [Concomitant]
  3. ZANAFLEX [Concomitant]
  4. CLONAZEPAM [Concomitant]
  5. EXTAVIA [Suspect]
     Indication: MULTIPLE SCLEROSIS
     Dosage: 0.25 MG, QOD, SUBCUTANEOUS, 0.25 MG, QOD, SUBCUTANEOUS
     Route: 058
     Dates: start: 20100201
  6. EXTAVIA [Suspect]
     Indication: MULTIPLE SCLEROSIS
     Dosage: 0.25 MG, QOD, SUBCUTANEOUS, 0.25 MG, QOD, SUBCUTANEOUS
     Route: 058
     Dates: start: 20100219
  7. BETASERON [Concomitant]

REACTIONS (18)
  - INJECTION SITE PRURITUS [None]
  - OPTIC NEURITIS [None]
  - MULTIPLE SCLEROSIS RELAPSE [None]
  - HAEMORRHAGE [None]
  - INJECTION SITE REACTION [None]
  - PAIN IN EXTREMITY [None]
  - MALAISE [None]
  - HEADACHE [None]
  - CONTUSION [None]
  - INJECTION SITE URTICARIA [None]
  - INJECTION SITE DISCOLOURATION [None]
  - EYE PAIN [None]
  - INJECTION SITE INJURY [None]
  - INJECTION SITE PAIN [None]
  - INJECTION SITE HAEMATOMA [None]
  - VISION BLURRED [None]
  - PYREXIA [None]
  - INJECTION SITE ERYTHEMA [None]
